FAERS Safety Report 7161122-8 (Version None)
Quarter: 2010Q4

REPORT INFORMATION
  Report Type: 
  Country: None (occurrence: None)
  Receive Date: 20101215
  Receipt Date: 20101130
  Transmission Date: 20110411
  Serious: No
  Sender: FDA-Public Use
  Company Number: US-BIOGENIDEC-2010BI032799

PATIENT
  Age: 58 Year
  Sex: Female

DRUGS (2)
  1. AVONEX [Suspect]
     Indication: MULTIPLE SCLEROSIS
     Route: 030
     Dates: start: 20030801
  2. AVONEX [Suspect]
     Route: 030
     Dates: start: 19980201, end: 20030801

REACTIONS (7)
  - HEADACHE [None]
  - HYPERSENSITIVITY [None]
  - LYME DISEASE [None]
  - MENINGITIS [None]
  - PYREXIA [None]
  - RASH [None]
  - VIRAL INFECTION [None]
